FAERS Safety Report 7860453-3 (Version None)
Quarter: 2011Q4

REPORT INFORMATION
  Report Type: 
  Country: None (occurrence: None)
  Receive Date: 20111027
  Receipt Date: 20111023
  Transmission Date: 20120403
  Serious: Yes (Life-Threatening, Hospitalization, Other)
  Sender: FDA-Public Use
  Company Number: PHHY2011EG93743

PATIENT
  Age: 33 Year
  Sex: Female
  Weight: 70 kg

DRUGS (3)
  1. ZOLEDRONOC ACID [Suspect]
     Indication: OSTEOPOROSIS
     Dosage: 5 MG, UNK
     Route: 042
     Dates: start: 20111005
  2. DICLOFENAC SODIUM [Concomitant]
     Dosage: 150 UKN, UNK
     Dates: start: 20110924
  3. PREGABALIN [Concomitant]
     Dosage: 100 MG, UNK

REACTIONS (5)
  - BALANCE DISORDER [None]
  - SPEECH DISORDER [None]
  - RENAL FAILURE ACUTE [None]
  - OEDEMA PERIPHERAL [None]
  - PAIN [None]
